FAERS Safety Report 19956980 (Version 1)
Quarter: 2021Q4

REPORT INFORMATION
  Report Type: Spontaneous
  Country: CN (occurrence: CN)
  Receive Date: 20211014
  Receipt Date: 20211014
  Transmission Date: 20220303
  Serious: Yes (Other)
  Sender: FDA-Public Use
  Company Number: CN-BAXTER-2021BAX028674

PATIENT
  Age: 47 Year
  Sex: Female
  Weight: 49 kg

DRUGS (10)
  1. CYCLOPHOSPHAMIDE [Suspect]
     Active Substance: CYCLOPHOSPHAMIDE
     Indication: Breast cancer female
     Dosage: FIRST CYCLE
     Route: 042
  2. CYCLOPHOSPHAMIDE [Suspect]
     Active Substance: CYCLOPHOSPHAMIDE
     Dosage: CYCLOPHOSPHAMIDE POWDER FOR INJECTION 900 MG + 0.9% SODIUM CHLORIDE INJECTION 50ML (DAY 1)
     Route: 042
     Dates: start: 20200904, end: 20200904
  3. SODIUM CHLORIDE [Suspect]
     Active Substance: SODIUM CHLORIDE
     Indication: Medication dilution
     Dosage: CYCLOPHOSPHAMIDE POWDER FOR INJECTION 900 MG + 0.9% SODIUM CHLORIDE INJECTION 50ML (DAY 1)
     Route: 042
     Dates: start: 20200904, end: 20200904
  4. EPIRUBICIN [Suspect]
     Active Substance: EPIRUBICIN
     Indication: Breast cancer female
     Dosage: FIRST CYCLE
     Route: 042
  5. EPIRUBICIN [Suspect]
     Active Substance: EPIRUBICIN
     Dosage: EPIRUBICIN HYDROCHLORIDE INJECTION 140 MG + SODIUM CHLORIDE INJECTION 50ML (DAY 1, SECOND CYCLE)
     Route: 042
     Dates: start: 20200904, end: 20200904
  6. SODIUM CHLORIDE [Suspect]
     Active Substance: SODIUM CHLORIDE
     Indication: Medication dilution
     Dosage: EPIRUBICIN HYDROCHLORIDE INJECTION 140 MG + SODIUM CHLORIDE INJECTION 50ML (DAY 1)
     Route: 042
     Dates: start: 20200904, end: 20200904
  7. DEXAMETHASONE SODIUM PHOSPHATE [Concomitant]
     Active Substance: DEXAMETHASONE SODIUM PHOSPHATE
     Indication: Nausea
     Route: 065
     Dates: start: 20200904
  8. DEXAMETHASONE SODIUM PHOSPHATE [Concomitant]
     Active Substance: DEXAMETHASONE SODIUM PHOSPHATE
     Indication: Vomiting
  9. DEXAMETHASONE SODIUM PHOSPHATE [Concomitant]
     Active Substance: DEXAMETHASONE SODIUM PHOSPHATE
     Indication: Dizziness
  10. METOCLOPRAMIDE HYDROCHLORIDE [Concomitant]
     Active Substance: METOCLOPRAMIDE HYDROCHLORIDE
     Indication: Antiemetic supportive care
     Route: 030
     Dates: start: 20200904

REACTIONS (3)
  - Drug-induced liver injury [Recovering/Resolving]
  - White blood cell count decreased [Recovering/Resolving]
  - Gastrointestinal disorder [Recovering/Resolving]

NARRATIVE: CASE EVENT DATE: 20200906
